FAERS Safety Report 4624852-5 (Version None)
Quarter: 2005Q2

REPORT INFORMATION
  Report Type: 
  Country: None (occurrence: None)
  Receive Date: 20050401
  Receipt Date: 20050203
  Transmission Date: 20051028
  Serious: Yes (Hospitalization)
  Sender: FDA-Public Use
  Company Number: PHEH2005US01731

PATIENT
  Age: 65 Year
  Sex: Female

DRUGS (6)
  1. METOPROLOL TARTRATE [Suspect]
     Dates: start: 20020201, end: 20040301
  2. ATENOLOL [Suspect]
     Indication: HYPERTENSION
     Dates: start: 20030801, end: 20040302
  3. DILTIAZEM [Suspect]
  4. SYNTHROID [Concomitant]
  5. PRAVACHOL [Concomitant]
     Indication: BLOOD CHOLESTEROL INCREASED
  6. PREVACID [Suspect]

REACTIONS (6)
  - ATRIAL FIBRILLATION [None]
  - BLOOD TEST ABNORMAL [None]
  - DRUG TOLERANCE DECREASED [None]
  - MOUTH ULCERATION [None]
  - OROPHARYNGEAL SWELLING [None]
  - THROAT TIGHTNESS [None]
